FAERS Safety Report 18255441 (Version 18)
Quarter: 2020Q4

REPORT INFORMATION
  Report Type: Report from Study
  Country: US (occurrence: US)
  Receive Date: 20200910
  Receipt Date: 20201217
  Transmission Date: 20210113
  Serious: Yes (Hospitalization, Other)
  Sender: FDA-Public Use
  Company Number: NVSC2020US247619

PATIENT
  Age: 48 Year
  Sex: Female
  Weight: 108.84 kg

DRUGS (9)
  1. TREPROSTINIL. [Suspect]
     Active Substance: TREPROSTINIL
     Dosage: UNK, CONT (14 NG/KG/MIN)
     Route: 042
  2. ADEMPAS [Concomitant]
     Active Substance: RIOCIGUAT
     Indication: PRODUCT USED FOR UNKNOWN INDICATION
     Dosage: UNK
     Route: 065
  3. TREPROSTINIL. [Suspect]
     Active Substance: TREPROSTINIL
     Dosage: UNK, CONT (18 NG/KG/MIN)
     Route: 042
  4. TREPROSTINIL. [Suspect]
     Active Substance: TREPROSTINIL
     Dosage: UNK, CONT (24 NG/KG/MIN)
     Route: 042
  5. OPSUMIT [Concomitant]
     Active Substance: MACITENTAN
     Indication: PRODUCT USED FOR UNKNOWN INDICATION
     Dosage: UNK
     Route: 065
  6. TREPROSTINIL. [Suspect]
     Active Substance: TREPROSTINIL
     Indication: PULMONARY ARTERIAL HYPERTENSION
     Dosage: UNK, CONT (7 NG/KG/MIN)
     Route: 042
     Dates: start: 20200902
  7. TREPROSTINIL. [Suspect]
     Active Substance: TREPROSTINIL
     Dosage: UNK  (19 NG/KG/MIN AT NOON)
     Route: 042
  8. TREPROSTINIL. [Suspect]
     Active Substance: TREPROSTINIL
     Dosage: UNK, CONT (38 NG/KG/MIN)
     Route: 042
  9. UPTRAVI [Concomitant]
     Active Substance: SELEXIPAG
     Indication: PRODUCT USED FOR UNKNOWN INDICATION
     Dosage: UNK
     Route: 065

REACTIONS (30)
  - Fluid retention [Unknown]
  - Skin irritation [Unknown]
  - Incorrect dose administered [Unknown]
  - Rash [Unknown]
  - Pruritus [Unknown]
  - Diarrhoea [Unknown]
  - Fatigue [Unknown]
  - Dyspnoea [Unknown]
  - Blood pressure increased [Unknown]
  - Oxygen saturation abnormal [Unknown]
  - Cardiac failure [Unknown]
  - Burning sensation [Unknown]
  - Heart rate increased [Unknown]
  - Vision blurred [Unknown]
  - Pulse abnormal [Unknown]
  - Complication associated with device [Unknown]
  - Vomiting [Unknown]
  - Vascular device infection [Unknown]
  - Catheter site related reaction [Unknown]
  - Oxygen saturation decreased [Unknown]
  - Injection site inflammation [Unknown]
  - Syncope [Unknown]
  - Pulmonary hypertension [Unknown]
  - Injection site discharge [Unknown]
  - Blood pressure abnormal [Unknown]
  - Malaise [Unknown]
  - Dizziness [Not Recovered/Not Resolved]
  - Catheter site irritation [Unknown]
  - Erythema [Unknown]
  - Nausea [Unknown]

NARRATIVE: CASE EVENT DATE: 20200921
